FAERS Safety Report 8074377-2 (Version None)
Quarter: 2012Q1

REPORT INFORMATION
  Report Type: 
  Country: None (occurrence: None)
  Receive Date: 20120126
  Receipt Date: 20120123
  Transmission Date: 20120608
  Serious: Yes (Hospitalization, Other)
  Sender: FDA-Public Use
  Company Number: US-GLAXOSMITHKLINE-A0960465A

PATIENT
  Age: 34 Year
  Sex: Female
  Weight: 66.1 kg

DRUGS (5)
  1. DIGOXIN [Suspect]
     Indication: PRODUCT USED FOR UNKNOWN INDICATION
     Dosage: .25MG SINGLE DOSE
     Route: 048
     Dates: start: 20111002, end: 20111002
  2. STUDY MEDICATION [Concomitant]
     Dosage: 200MG PER DAY
     Dates: start: 20110923, end: 20111005
  3. STUDY MEDICATION [Concomitant]
     Dosage: 30MG TWICE PER DAY
     Dates: start: 20110923, end: 20111005
  4. IBUPROFEN [Concomitant]
  5. STUDY MEDICATION [Concomitant]
     Indication: HEPATITIS C
     Dosage: 90MG PER DAY
     Dates: start: 20110923, end: 20111005

REACTIONS (1)
  - INTERSTITIAL LUNG DISEASE [None]
